FAERS Safety Report 21128548 (Version 1)
Quarter: 2022Q3

REPORT INFORMATION
  Report Type: Other
  Country: US (occurrence: None)
  Receive Date: 20220725
  Receipt Date: 20220725
  Transmission Date: 20221027
  Serious: Yes (Other)
  Sender: FDA-Public Use
  Company Number: US-ROCHE-3140980

PATIENT
  Age: 58 Year
  Sex: Female
  Weight: 59.020 kg

DRUGS (7)
  1. AVASTIN [Suspect]
     Active Substance: BEVACIZUMAB
     Indication: Ovarian cancer
     Route: 042
     Dates: start: 202101, end: 202204
  2. ZEJULA [Concomitant]
     Active Substance: NIRAPARIB
     Route: 048
     Dates: start: 20220412
  3. FLOVENT [Concomitant]
     Active Substance: FLUTICASONE PROPIONATE
     Indication: Asthma
     Dosage: PATIENT STATES 1 PUFF PER DAY
     Route: 055
     Dates: start: 1991
  4. ALBUTEROL [Concomitant]
     Active Substance: ALBUTEROL
     Indication: Asthma
     Dosage: PATIENT STATES 2 PUFFS AS NEEDED
     Route: 055
     Dates: start: 1978
  5. PROTONIX [Concomitant]
     Active Substance: PANTOPRAZOLE SODIUM
     Indication: Abdominal pain upper
     Dosage: PATIENT STATES SHE TAKES IT WITH ZEJULA
     Route: 048
     Dates: start: 202204
  6. CARBOPLATIN [Concomitant]
     Active Substance: CARBOPLATIN
     Indication: Ovarian cancer
     Route: 042
     Dates: start: 202101, end: 202104
  7. TAXOL [Concomitant]
     Active Substance: PACLITAXEL
     Indication: Ovarian cancer
     Route: 042
     Dates: start: 202101, end: 202104

REACTIONS (10)
  - Recurrent cancer [Not Recovered/Not Resolved]
  - Urticaria [Recovered/Resolved]
  - Nervous system disorder [Recovered/Resolved]
  - Musculoskeletal stiffness [Recovered/Resolved]
  - Musculoskeletal stiffness [Not Recovered/Not Resolved]
  - Arthralgia [Recovered/Resolved]
  - Fatigue [Unknown]
  - Panic disorder [Not Recovered/Not Resolved]
  - Arthralgia [Not Recovered/Not Resolved]
  - Muscle spasms [Not Recovered/Not Resolved]

NARRATIVE: CASE EVENT DATE: 20210101
